FAERS Safety Report 7722521-6 (Version None)
Quarter: 2011Q3

REPORT INFORMATION
  Report Type: 
  Country: None (occurrence: None)
  Receive Date: 20110831
  Receipt Date: 20110816
  Transmission Date: 20111222
  Serious: Yes (Other)
  Sender: FDA-Public Use
  Company Number: US-BAYER-2011-077210

PATIENT
  Age: 76 Year
  Sex: Female
  Weight: 113.38 kg

DRUGS (1)
  1. ASPIRIN [Suspect]
     Indication: TOOTHACHE
     Dosage: 1 DF, PRN
     Route: 048
     Dates: start: 20110811, end: 20110812

REACTIONS (8)
  - CHEILITIS [None]
  - SWOLLEN TONGUE [None]
  - HYPERSENSITIVITY [None]
  - URTICARIA [None]
  - PRURITUS [None]
  - CHEST DISCOMFORT [None]
  - RASH GENERALISED [None]
  - RASH [None]
